FAERS Safety Report 4283938-8 (Version None)
Quarter: 2004Q1

REPORT INFORMATION
  Report Type: 
  Country: None (occurrence: None)
  Receive Date: 20040115
  Receipt Date: 20021220
  Transmission Date: 20041129
  Serious: Yes (Other)
  Sender: FDA-Public Use
  Company Number: NSADSS2002046772

PATIENT
  Age: 77 Year
  Sex: Female
  Weight: 78.0187 kg

DRUGS (9)
  1. DOXIL [Suspect]
     Indication: ENDOMETRIAL CANCER
     Dosage: 40MG/M2 1 IN 28 DAY INTRAVENOUS DRIP
     Route: 041
     Dates: start: 20021105
  2. VANCERIL (BECLOMETASONE DIPROPIONATE) [Concomitant]
  3. LANOXIN [Concomitant]
  4. ATROVENT [Concomitant]
  5. VITAMIN E [Concomitant]
  6. CALTRATE [Concomitant]
  7. MAGNESIUM [Concomitant]
  8. CARDIZEM [Concomitant]
  9. IMIPRAMINE [Concomitant]

REACTIONS (4)
  - DYSPNOEA [None]
  - HYPERSENSITIVITY [None]
  - HYPOXIA [None]
  - WHEEZING [None]
